FAERS Safety Report 8890180 (Version 1)
Quarter: 2012Q4

REPORT INFORMATION
  Report Type: 
  Country: CA (occurrence: CA)
  Receive Date: 20121106
  Receipt Date: 20121106
  Transmission Date: 20130627
  Serious: Yes (Hospitalization, Other)
  Sender: FDA-Public Use
  Company Number: PHMT2006CA01811

PATIENT
  Sex: Female

DRUGS (3)
  1. SANDOSTATIN LAR [Suspect]
     Indication: ACROMEGALY
     Dosage: 20 mg,  every 4 weeks
     Dates: start: 20060606
  2. SANDOSTATIN LAR [Suspect]
     Dosage: 30 mg, QMO
     Route: 030
     Dates: end: 20071110
  3. ADVIL LIQUI-GELS [Concomitant]

REACTIONS (9)
  - Pituitary tumour [Unknown]
  - Epistaxis [Unknown]
  - Neoplasm [Recovering/Resolving]
  - Injection site haemorrhage [Unknown]
  - Erythema [Unknown]
  - Skin warm [Unknown]
  - Pain of skin [Unknown]
  - Menstruation delayed [Unknown]
  - Headache [Unknown]
